FAERS Safety Report 5958895-6 (Version None)
Quarter: 2008Q4

REPORT INFORMATION
  Report Type: 
  Country: None (occurrence: None)
  Receive Date: 20081118
  Receipt Date: 20081104
  Transmission Date: 20090506
  Serious: Yes (Hospitalization)
  Sender: FDA-Public Use
  Company Number: CIP08002300

PATIENT
  Age: 90 Year
  Sex: Female

DRUGS (4)
  1. ASACOL [Suspect]
     Indication: COLITIS
     Dosage: 1200 MG THREE TIMES DAILY, ORAL
     Route: 048
     Dates: start: 20080920
  2. ASACOL [Suspect]
     Indication: INFECTION
     Dosage: 1200 MG THREE TIMES DAILY, ORAL
     Route: 048
     Dates: start: 20080920
  3. CIPRO /00042702/ (CYPROHEPTADINE HYDROCHLORIDE) [Concomitant]
  4. FLAGYL [Concomitant]

REACTIONS (4)
  - COLITIS [None]
  - CONDITION AGGRAVATED [None]
  - GASTROENTERITIS VIRAL [None]
  - MALABSORPTION [None]
